FAERS Safety Report 12808553 (Version 1)
Quarter: 2016Q4

REPORT INFORMATION
  Report Type: Spontaneous
  Country: FR (occurrence: FR)
  Receive Date: 20161004
  Receipt Date: 20161004
  Transmission Date: 20170207
  Serious: Yes (Other)
  Sender: FDA-Public Use
  Company Number: FR-MYLANLABS-2016M1042421

PATIENT

DRUGS (7)
  1. TRAMADOL MYLAN GENERIQUES LP 150 MG, COMPRIM? ? LIB?RATION PROLONG?E [Suspect]
     Active Substance: TRAMADOL
     Dosage: 2 DF, QD
  2. FENOFIBRATE. [Concomitant]
     Active Substance: FENOFIBRATE
     Indication: LIVER DISORDER
     Dosage: UNK
  3. TRAMADOL MYLAN GENERIQUES LP 150 MG, COMPRIM? ? LIB?RATION PROLONG? E [Suspect]
     Active Substance: TRAMADOL
     Dosage: 300 MG, QD
  4. SANMIGRAN [Concomitant]
     Active Substance: PIZOTYLINE MALEATE
     Indication: MIGRAINE
     Dosage: 50 MG, QD
  5. ISOPTINE [Concomitant]
     Active Substance: VERAPAMIL HYDROCHLORIDE
     Indication: HYPERTENSION
     Dosage: UNK
  6. TRAMADOL MYLAN GENERIQUES LP 150 MG, COMPRIM? ? LIB?RATION PROLONG?E [Suspect]
     Active Substance: TRAMADOL
     Indication: FIBROMYALGIA
     Dosage: 150 MG, TID
  7. PARIET [Concomitant]
     Active Substance: RABEPRAZOLE SODIUM
     Indication: GASTROOESOPHAGEAL REFLUX DISEASE
     Dosage: UNK

REACTIONS (5)
  - Drug dependence [Recovering/Resolving]
  - Tremor [Recovering/Resolving]
  - Skin burning sensation [Recovering/Resolving]
  - Insomnia [Recovering/Resolving]
  - Hyperhidrosis [Recovering/Resolving]
